FAERS Safety Report 4680766-6 (Version None)
Quarter: 2005Q2

REPORT INFORMATION
  Report Type: 
  Country: None (occurrence: None)
  Receive Date: 20050601
  Receipt Date: 20050601
  Transmission Date: 20051028
  Serious: No
  Sender: FDA-Public Use
  Company Number: None

PATIENT
  Age: 83 Year
  Sex: Female
  Weight: 63.64 kg

DRUGS (2)
  1. TOPIRAMATE [Suspect]
     Indication: CONVULSION
     Dosage: 250 MG BID PO
     Route: 048
     Dates: start: 20050430, end: 20050501
  2. VALPROIC ACID [Concomitant]

REACTIONS (1)
  - VENTRICULAR TACHYCARDIA [None]
